FAERS Safety Report 10077469 (Version 2)
Quarter: 2014Q2

REPORT INFORMATION
  Report Type: Spontaneous
  Country: US (occurrence: US)
  Receive Date: 20140414
  Receipt Date: 20140414
  Transmission Date: 20141212
  Serious: No
  Sender: FDA-Public Use
  Company Number: US-BANPHARM-20131573

PATIENT
  Age: 75 Year
  Sex: Female
  Weight: 63.5 kg

DRUGS (5)
  1. ALEVE LIQUID GELS 220 MG [Suspect]
     Indication: PAIN
     Dosage: 2 DF, PRN,
     Route: 048
     Dates: start: 20130805
  2. LOSARTAN [Concomitant]
  3. NORVASC [Concomitant]
  4. DIURETIC [Concomitant]
  5. GENERIC VITAMIN D [Concomitant]

REACTIONS (1)
  - Peripheral swelling [Not Recovered/Not Resolved]
